FAERS Safety Report 5901997-0 (Version None)
Quarter: 2008Q3

REPORT INFORMATION
  Report Type: 
  Country: None (occurrence: None)
  Receive Date: 20080929
  Receipt Date: 20071019
  Transmission Date: 20090109
  Serious: No
  Sender: FDA-Public Use
  Company Number: A0688728A

PATIENT

DRUGS (1)
  1. FORTAZ [Suspect]
     Indication: PROPHYLAXIS
     Route: 042

REACTIONS (2)
  - ACCIDENTAL OVERDOSE [None]
  - MEDICATION ERROR [None]
